FAERS Safety Report 4550552-6 (Version None)
Quarter: 2004Q4

REPORT INFORMATION
  Report Type: 
  Country: None (occurrence: None)
  Receive Date: 20041227
  Receipt Date: 20041122
  Transmission Date: 20050328
  Serious: No
  Sender: FDA-Public Use
  Company Number: 04P-163-0281213-00

PATIENT
  Age: 69 Year
  Sex: Female
  Weight: 53.5244 kg

DRUGS (16)
  1. HUMIRA [Suspect]
     Indication: RHEUMATOID ARTHRITIS
     Dosage: 40 MG, 1 IN 2 WK, SUBCUTANEOUS
     Route: 058
     Dates: start: 20040924
  2. CAPTOPRIL [Concomitant]
  3. BISELECT [Concomitant]
  4. WARFARIN [Concomitant]
  5. PREDNISONE [Concomitant]
  6. METHOTREXATE [Concomitant]
  7. ATORVASTATIN [Concomitant]
  8. PAROXETINE HYDROCHLORIDE [Concomitant]
  9. RISEDRONATE SODIUM [Concomitant]
  10. FOLIC ACID [Concomitant]
  11. EPOGEN [Concomitant]
  12. CYANOCOBALAMIN [Concomitant]
  13. CHLORZOXAZONE [Concomitant]
  14. ALPRAZOLAM [Concomitant]
  15. HYDROCODONE [Concomitant]
  16. CALCIUM GLUCONATE [Concomitant]

REACTIONS (2)
  - INJECTION SITE BURNING [None]
  - INJECTION SITE PAIN [None]
